FAERS Safety Report 5105767-5 (Version None)
Quarter: 2006Q3

REPORT INFORMATION
  Report Type: 
  Country: None (occurrence: None)
  Receive Date: 20060915
  Receipt Date: 20060908
  Transmission Date: 20061208
  Serious: Yes (Hospitalization)
  Sender: FDA-Public Use
  Company Number: FR-BRISTOL-MYERS SQUIBB COMPANY-13504873

PATIENT
  Age: 90 Year
  Sex: Male

DRUGS (9)
  1. AMIKLIN INJ 500 MG [Suspect]
     Indication: BACTERAEMIA
     Route: 042
     Dates: start: 20060803, end: 20060810
  2. DEPAKENE [Suspect]
     Indication: EPILEPSY
     Dates: start: 20060731, end: 20060810
  3. CEFTRIAXONE [Suspect]
     Indication: BACTERAEMIA
     Route: 042
     Dates: start: 20060803, end: 20060810
  4. CORDARONE [Concomitant]
     Indication: TACHYCARDIA
     Route: 048
     Dates: start: 20060731, end: 20060816
  5. ORBENIN CAP [Concomitant]
     Indication: PROPHYLAXIS
     Route: 042
     Dates: start: 20060813, end: 20060819
  6. TEGRETOL [Concomitant]
     Indication: EPILEPSY
     Route: 048
     Dates: start: 20060804, end: 20060818
  7. VASTAREL [Concomitant]
  8. UN-ALFA [Concomitant]
  9. EUPANTOL [Concomitant]

REACTIONS (6)
  - ALANINE AMINOTRANSFERASE INCREASED [None]
  - ASPARTATE AMINOTRANSFERASE INCREASED [None]
  - BLOOD ALKALINE PHOSPHATASE INCREASED [None]
  - BLOOD BILIRUBIN INCREASED [None]
  - GAMMA-GLUTAMYLTRANSFERASE INCREASED [None]
  - HEPATIC ENZYME INCREASED [None]
